FAERS Safety Report 9709067 (Version 2)
Quarter: 2013Q4

REPORT INFORMATION
  Report Type: Spontaneous
  Country: IT (occurrence: IT)
  Receive Date: 20131125
  Receipt Date: 20131125
  Transmission Date: 20140711
  Serious: Yes (Other)
  Sender: FDA-Public Use
  Company Number: PHHY2013IT107091

PATIENT
  Sex: Male

DRUGS (8)
  1. FUROSEMIDE [Suspect]
     Indication: HYPERTENSION
     Dosage: 1 DF, QD
     Route: 048
     Dates: start: 20130101, end: 20130729
  2. ENANTONE [Concomitant]
     Dosage: UNK UKN, UNK
  3. DILATREND [Concomitant]
     Dosage: 6.25 MG, UNK
  4. DEPONIT [Concomitant]
     Dosage: UNK UKN, UNK
     Route: 062
  5. TRIATEC [Concomitant]
     Dosage: 2.5 MG, UNK
  6. FERRO-GRAD [Concomitant]
     Dosage: 105 MG, UNK
  7. PANTOPRAZOLE [Concomitant]
     Dosage: UNK UKN, UNK
  8. ASA [Concomitant]
     Dosage: UNK UKN, UNK

REACTIONS (2)
  - Renal failure acute [Not Recovered/Not Resolved]
  - Dehydration [Not Recovered/Not Resolved]
